FAERS Safety Report 13639120 (Version 1)
Quarter: 2017Q2

REPORT INFORMATION
  Report Type: Spontaneous
  Country: US (occurrence: US)
  Receive Date: 20170609
  Receipt Date: 20170609
  Transmission Date: 20170830
  Serious: No
  Sender: FDA-Public Use
  Company Number: US-ROCHE-1190626

PATIENT
  Sex: Female

DRUGS (2)
  1. KLONOPIN [Suspect]
     Active Substance: CLONAZEPAM
     Indication: ANXIETY
     Route: 065
  2. LORAZEPAM. [Concomitant]
     Active Substance: LORAZEPAM

REACTIONS (13)
  - Impulsive behaviour [Unknown]
  - Feeling abnormal [Unknown]
  - Depression [Unknown]
  - Anxiety [Unknown]
  - Drug effect incomplete [Unknown]
  - Agitation [Unknown]
  - Restlessness [Unknown]
  - Memory impairment [Unknown]
  - Insomnia [Unknown]
  - Panic attack [Unknown]
  - Mood altered [Unknown]
  - Abnormal behaviour [Unknown]
  - Thinking abnormal [Unknown]
